FAERS Safety Report 11444565 (Version 1)
Quarter: 2015Q3

REPORT INFORMATION
  Report Type: Spontaneous
  Country: DE (occurrence: DE)
  Receive Date: 20150902
  Receipt Date: 20150902
  Transmission Date: 20151125
  Serious: Yes (Hospitalization, Other)
  Sender: FDA-Public Use
  Company Number: DE-AMGEN-DEUSP2015088805

PATIENT
  Age: 72 Year
  Sex: Female

DRUGS (3)
  1. FORTECORTIN                        /00016001/ [Concomitant]
     Active Substance: DEXAMETHASONE
     Dosage: 4 MG, QWK
  2. CARFILZOMIB [Suspect]
     Active Substance: CARFILZOMIB
     Indication: PRODUCT USED FOR UNKNOWN INDICATION
     Dosage: 30 MG, 2 TIMES/WK
     Route: 042
     Dates: start: 20150518, end: 20150824
  3. NEURONTIN [Concomitant]
     Active Substance: GABAPENTIN
     Dosage: 30
     Route: 058

REACTIONS (7)
  - Pancytopenia [Unknown]
  - Pneumonia [Not Recovered/Not Resolved]
  - Neutropenia [Unknown]
  - Infection [Unknown]
  - Bone marrow infiltration [Unknown]
  - Malaise [Unknown]
  - Pyrexia [Not Recovered/Not Resolved]

NARRATIVE: CASE EVENT DATE: 20150825
